FAERS Safety Report 10980101 (Version 1)
Quarter: 2015Q2

REPORT INFORMATION
  Report Type: Spontaneous
  Country: US (occurrence: US)
  Receive Date: 20150402
  Receipt Date: 20150402
  Transmission Date: 20150821
  Serious: Yes (Death, Other)
  Sender: FDA-Public Use
  Company Number: US-GLAXOSMITHKLINE-US2015GSK044135

PATIENT
  Age: 82 Year
  Sex: Male

DRUGS (1)
  1. HYCAMTIN [Suspect]
     Active Substance: TOPOTECAN HYDROCHLORIDE
     Indication: HEPATIC NEOPLASM
     Dosage: 1 MG, QD
     Route: 048
     Dates: start: 20150108, end: 20150208

REACTIONS (1)
  - Death [Fatal]

NARRATIVE: CASE EVENT DATE: 20150321
